FAERS Safety Report 9849052 (Version 1)
Quarter: 2014Q1

REPORT INFORMATION
  Report Type: Spontaneous
  Country: IT (occurrence: None)
  Receive Date: 20140124
  Receipt Date: 20140124
  Transmission Date: 20141002
  Serious: Yes (Hospitalization)
  Sender: FDA-Public Use
  Company Number: AUR-APL-2014-00485

PATIENT
  Age: 46 Year
  Sex: Female

DRUGS (2)
  1. FLUCONAZOLE [Suspect]
     Indication: ONYCHOMYCOSIS
     Dosage: 1 D
     Route: 048
     Dates: start: 20131215, end: 20140105
  2. CIPROXIN (CIPROFLOXACIN) [Concomitant]

REACTIONS (1)
  - Stevens-Johnson syndrome [None]
